FAERS Safety Report 5170634-8 (Version None)
Quarter: 2006Q4

REPORT INFORMATION
  Report Type: 
  Country: None (occurrence: None)
  Receive Date: 20061205
  Receipt Date: 20061023
  Transmission Date: 20070319
  Serious: Yes (Other)
  Sender: FDA-Public Use
  Company Number: 2006144724

PATIENT
  Sex: Male

DRUGS (3)
  1. LIPITOR [Suspect]
     Dosage: 40 MG    6 YEARS AGO
     Dates: end: 20060101
  2. ENALAPRIL MALEATE [Concomitant]
  3. RENETIC PLUS                               (ENALAPRIL MALEATE, HYDROCH [Concomitant]

REACTIONS (6)
  - FATIGUE [None]
  - HYPOAESTHESIA [None]
  - PERIPHERAL PARALYSIS [None]
  - PROSTATIC OPERATION [None]
  - SENSORY DISTURBANCE [None]
  - TREMOR [None]
